FAERS Safety Report 12701922 (Version 1)
Quarter: 2016Q3

REPORT INFORMATION
  Report Type: Spontaneous
  Country: US (occurrence: US)
  Receive Date: 20160831
  Receipt Date: 20160831
  Transmission Date: 20161109
  Serious: No
  Sender: FDA-Public Use
  Company Number: US-JAZZ-2016-US-007365

PATIENT
  Age: 38 Year
  Sex: Female

DRUGS (18)
  1. XYREM [Suspect]
     Active Substance: SODIUM OXYBATE
     Indication: CATAPLEXY
     Dosage: 3 G, BID
     Route: 048
     Dates: start: 201604, end: 201604
  2. KEFLEX [Concomitant]
     Active Substance: CEPHALEXIN
  3. MAGNESIUM [Concomitant]
     Active Substance: MAGNESIUM
  4. VITAMIN B COMPLEX [Concomitant]
     Active Substance: CYANOCOBALAMIN\DEXPANTHENOL\NIACINAMIDE\PYRIDOXINE HYDROCHLORIDE\RIBOFLAVIN 5^-PHOSPHATE SODIUM\THIAMINE HYDROCHLORIDE\VITAMIN B COMPLEX
  5. FISH OIL CONCENTRATE [Concomitant]
  6. MULTIVITAMINS [Concomitant]
     Active Substance: VITAMINS
  7. MINERALS [Concomitant]
     Active Substance: MINERALS
  8. ADDERALL [Concomitant]
     Active Substance: AMPHETAMINE ASPARTATE\AMPHETAMINE SULFATE\DEXTROAMPHETAMINE SACCHARATE\DEXTROAMPHETAMINE SULFATE
     Indication: NARCOLEPSY
  9. PROBIOTIC [Concomitant]
     Active Substance: PROBIOTICS NOS
  10. WELLBUTRIN [Concomitant]
     Active Substance: BUPROPION HYDROCHLORIDE
  11. LORATADINE. [Concomitant]
     Active Substance: LORATADINE
  12. XYREM [Suspect]
     Active Substance: SODIUM OXYBATE
     Dosage: 3.75 G, BID
     Route: 048
     Dates: start: 201604
  13. LEXAPRO [Concomitant]
     Active Substance: ESCITALOPRAM OXALATE
     Indication: ANXIETY
  14. XYREM [Suspect]
     Active Substance: SODIUM OXYBATE
     Indication: NARCOLEPSY
     Dosage: 2.25 G, BID
     Route: 048
     Dates: start: 20160402, end: 201604
  15. LITHIUM. [Concomitant]
     Active Substance: LITHIUM
  16. LEVOTHYROXINE SODIUM. [Concomitant]
     Active Substance: LEVOTHYROXINE SODIUM
     Indication: HYPOTHYROIDISM
  17. BUPROPION. [Concomitant]
     Active Substance: BUPROPION
     Indication: DEPRESSION
  18. VITAMIN D [Concomitant]
     Active Substance: CHOLECALCIFEROL

REACTIONS (4)
  - Breast mass [Recovering/Resolving]
  - Sensation of foreign body [Not Recovered/Not Resolved]
  - Enuresis [Unknown]
  - Dizziness [Unknown]

NARRATIVE: CASE EVENT DATE: 20160402
